FAERS Safety Report 7183841-X (Version None)
Quarter: 2010Q4

REPORT INFORMATION
  Report Type: 
  Country: None (occurrence: None)
  Receive Date: 20101222
  Receipt Date: 20101214
  Transmission Date: 20110411
  Serious: Yes (Other)
  Sender: FDA-Public Use
  Company Number: US-BAXTER-2010BH030059

PATIENT
  Sex: Female

DRUGS (2)
  1. GAMMAGARD LIQUID [Suspect]
     Indication: THROMBOCYTOPENIA NEONATAL
     Route: 065
  2. GAMMAGARD LIQUID [Suspect]
     Indication: AUTOIMMUNE THROMBOCYTOPENIA
     Route: 065

REACTIONS (1)
  - HAEMOLYSIS [None]
